FAERS Safety Report 14497246 (Version 1)
Quarter: 2018Q1

REPORT INFORMATION
  Report Type: Spontaneous
  Country: US (occurrence: US)
  Receive Date: 20180206
  Receipt Date: 20180206
  Transmission Date: 20180509
  Serious: No
  Sender: FDA-Public Use
  Company Number: None

PATIENT
  Age: 74 Year
  Sex: Female

DRUGS (1)
  1. APIXABAN [Suspect]
     Active Substance: APIXABAN
     Indication: ATRIAL FIBRILLATION
     Route: 048
     Dates: start: 20160201, end: 20180108

REACTIONS (4)
  - Gastric haemorrhage [None]
  - Rectal haemorrhage [None]
  - Haemoglobin decreased [None]
  - Therapy cessation [None]

NARRATIVE: CASE EVENT DATE: 20180108
